FAERS Safety Report 16423990 (Version 1)
Quarter: 2019Q2

REPORT INFORMATION
  Report Type: Report from Study
  Country: FR (occurrence: FR)
  Receive Date: 20190613
  Receipt Date: 20190613
  Transmission Date: 20190711
  Serious: Yes (Other)
  Sender: FDA-Public Use
  Company Number: FR-AUROBINDO-AUR-APL-2019-033182

PATIENT

DRUGS (1)
  1. ERTAPENEM POWDER FOR CONCENTRATE FOR SOLUTION FOR INFUSION [Suspect]
     Active Substance: ERTAPENEM
     Indication: ANTIBIOTIC THERAPY
     Dosage: 1 GRAM, TWO TIMES A DAY
     Route: 058

REACTIONS (4)
  - Pruritus allergic [Unknown]
  - Epilepsy [Unknown]
  - Drug eruption [Unknown]
  - Off label use [Unknown]
